FAERS Safety Report 9409322 (Version 2)
Quarter: 2013Q4

REPORT INFORMATION
  Report Type: Spontaneous
  Country: US (occurrence: US)
  Receive Date: 20130719
  Receipt Date: 20131009
  Transmission Date: 20140711
  Serious: No
  Sender: FDA-Public Use
  Company Number: US-PFIZER INC-2013211947

PATIENT
  Age: 48 Year
  Sex: Female

DRUGS (4)
  1. PRISTIQ [Suspect]
     Dosage: 100 MG, 1X/DAY (1 TAB PO QD)
     Route: 048
  2. SIMVASTATIN [Concomitant]
     Dosage: UNK
  3. SYNTHROID [Concomitant]
     Dosage: UNK
  4. XANAX [Concomitant]
     Dosage: UNK

REACTIONS (1)
  - Drug withdrawal syndrome [Unknown]
